FAERS Safety Report 5682291-2 (Version None)
Quarter: 2008Q1

REPORT INFORMATION
  Report Type: 
  Country: None (occurrence: None)
  Receive Date: 20080327
  Receipt Date: 20080317
  Transmission Date: 20080703
  Serious: Yes (Other)
  Sender: FDA-Public Use
  Company Number: PHEH2008US02880

PATIENT
  Sex: Male

DRUGS (2)
  1. ZOMETA [Suspect]
     Indication: OSTEOPENIA
     Dosage: 4 MG, QMONTH
     Route: 042
  2. AREDIA [Suspect]

REACTIONS (4)
  - DENTAL IMPLANTATION [None]
  - LOOSE TOOTH [None]
  - ORAL DISORDER [None]
  - ORAL SURGERY [None]
